FAERS Safety Report 21628992 (Version 1)
Quarter: 2022Q4

REPORT INFORMATION
  Report Type: Spontaneous
  Country: US (occurrence: US)
  Receive Date: 20221122
  Receipt Date: 20221122
  Transmission Date: 20230113
  Serious: No
  Sender: FDA-Public Use
  Company Number: US-SANOFI-01363603

PATIENT
  Age: 23 Year
  Sex: Female

DRUGS (1)
  1. DUPIXENT [Suspect]
     Active Substance: DUPILUMAB
     Indication: Dermatitis atopic
     Dosage: 300 MG, QOW
     Route: 065
     Dates: start: 20210901

REACTIONS (5)
  - Solar lentigo [Unknown]
  - Condition aggravated [Unknown]
  - Skin hyperpigmentation [Unknown]
  - Dermatitis contact [Unknown]
  - Skin irritation [Unknown]

NARRATIVE: CASE EVENT DATE: 20220701
